FAERS Safety Report 6307976-6 (Version None)
Quarter: 2009Q3

REPORT INFORMATION
  Report Type: 
  Country: None (occurrence: None)
  Receive Date: 20090813
  Receipt Date: 20090805
  Transmission Date: 20100115
  Serious: Yes (Hospitalization)
  Sender: FDA-Public Use
  Company Number: CH-ASTRAZENECA-2009SE06904

PATIENT
  Age: 83 Year
  Sex: Female

DRUGS (12)
  1. PROPOFOL [Suspect]
     Indication: GENERAL ANAESTHESIA
     Dosage: AS NECESSARY
     Route: 041
     Dates: start: 20090416, end: 20090416
  2. MORPHINE [Interacting]
     Indication: PAIN
     Route: 040
     Dates: start: 20090416
  3. SUFENTA PRESERVATIVE FREE [Interacting]
     Indication: GENERAL ANAESTHESIA
     Route: 041
     Dates: start: 20090416, end: 20090416
  4. DORMICUM [Interacting]
     Route: 040
     Dates: start: 20090416, end: 20090416
  5. MERONEM [Concomitant]
     Route: 041
     Dates: start: 20090416, end: 20090416
  6. SUCCINYLCHOLINE CHLORIDE [Concomitant]
     Route: 041
     Dates: start: 20090416, end: 20090416
  7. TORADOL [Concomitant]
     Route: 040
     Dates: start: 20090416, end: 20090416
  8. VANCOMYCIN HCL [Concomitant]
     Dosage: SHORT TERM
     Route: 041
     Dates: start: 20090416
  9. FOLVITE [Concomitant]
     Route: 048
  10. VITARUBIN [Concomitant]
     Route: 058
     Dates: start: 20090406
  11. EUTHYROX [Concomitant]
     Dosage: LONG TERM
     Route: 048
  12. CALCIMAGON-D 3 [Concomitant]
     Dosage: LONG TERM
     Route: 048

REACTIONS (2)
  - DRUG INTERACTION [None]
  - SEDATION [None]
